FAERS Safety Report 8188965-6 (Version None)
Quarter: 2012Q1

REPORT INFORMATION
  Report Type: 
  Country: None (occurrence: None)
  Receive Date: 20120306
  Receipt Date: 20120221
  Transmission Date: 20120608
  Serious: Yes (Hospitalization)
  Sender: FDA-Public Use
  Company Number: PHHO2012GB003325

PATIENT
  Sex: Female
  Weight: 19.9 kg

DRUGS (3)
  1. FOLIC ACID [Concomitant]
     Dosage: 2 MG, QD
     Route: 048
     Dates: start: 20090801
  2. METHOTREXATE [Concomitant]
     Dosage: 10 MG, ONES A WEEK
     Route: 058
     Dates: start: 20090801
  3. ILARIS [Suspect]
     Indication: JUVENILE ARTHRITIS
     Dosage: 4 MG, UNK
     Route: 058

REACTIONS (1)
  - HISTIOCYTOSIS HAEMATOPHAGIC [None]
